FAERS Safety Report 9996292 (Version 1)
Quarter: 2014Q1

REPORT INFORMATION
  Report Type: Spontaneous
  Country: US (occurrence: None)
  Receive Date: 20140310
  Receipt Date: 20140310
  Transmission Date: 20141002
  Serious: Yes (Hospitalization)
  Sender: FDA-Public Use
  Company Number: None

PATIENT
  Age: 43 Year
  Sex: Female
  Weight: 98.88 kg

DRUGS (2)
  1. GENERESS FE [Suspect]
     Indication: MENORRHAGIA
     Route: 048
     Dates: start: 20140307, end: 20140307
  2. GENERESS FE [Suspect]
     Indication: MENORRHAGIA
     Route: 048
     Dates: start: 20140307, end: 20140307

REACTIONS (3)
  - Chest pain [None]
  - Pulmonary embolism [None]
  - Deep vein thrombosis [None]
